FAERS Safety Report 7906615-8 (Version None)
Quarter: 2011Q4

REPORT INFORMATION
  Report Type: 
  Country: None (occurrence: None)
  Receive Date: 20111110
  Receipt Date: 20111107
  Transmission Date: 20120403
  Serious: Yes (Other)
  Sender: FDA-Public Use
  Company Number: GXKR2011DE003238

PATIENT

DRUGS (1)
  1. CEFADROXIL 1A PHARMA [Suspect]
     Indication: TONSILLITIS STREPTOCOCCAL
     Dosage: 1X1
     Route: 048
     Dates: start: 20110520, end: 20110529

REACTIONS (1)
  - APHASIA [None]
